FAERS Safety Report 26110462 (Version 1)
Quarter: 2025Q4

REPORT INFORMATION
  Report Type: Report from Study
  Country: US (occurrence: US)
  Receive Date: 20251202
  Receipt Date: 20251202
  Transmission Date: 20260117
  Serious: Yes (Other)
  Sender: CSL BEHRING
  Company Number: US-BEH-2025222064

PATIENT
  Age: 50 Year
  Sex: Female

DRUGS (3)
  1. GARADACIMAB [Suspect]
     Active Substance: GARADACIMAB
     Indication: Hereditary angioedema
     Dosage: 400 MG LOADING DOSE X 1. THEN 200 MONTHLY.
     Route: 065
  2. GARADACIMAB [Suspect]
     Active Substance: GARADACIMAB
     Indication: Prophylaxis
     Dosage: 400 MG
     Route: 058
     Dates: start: 202510, end: 202510
  3. GARADACIMAB [Suspect]
     Active Substance: GARADACIMAB
     Dosage: 200 MG
     Route: 058
     Dates: end: 202510

REACTIONS (8)
  - Hereditary angioedema [Recovered/Resolved]
  - Hereditary angioedema [Recovering/Resolving]
  - Mast cell activation syndrome [Recovering/Resolving]
  - Injection site erythema [Recovered/Resolved]
  - Injection site swelling [Recovering/Resolving]
  - Injection site erythema [Recovering/Resolving]
  - Injection site pain [Recovering/Resolving]
  - Injection site pruritus [Recovering/Resolving]
